FAERS Safety Report 18655302 (Version 1)
Quarter: 2020Q4

REPORT INFORMATION
  Report Type: Spontaneous
  Country: GB (occurrence: GB)
  Receive Date: 20201223
  Receipt Date: 20201223
  Transmission Date: 20210114
  Serious: Yes (Disabling, Other)
  Sender: FDA-Public Use
  Company Number: GB-009507513-2012GBR010298

PATIENT
  Age: 28 Year
  Sex: Male
  Weight: 85 kg

DRUGS (5)
  1. SYNALAR [Suspect]
     Active Substance: FLUOCINOLONE ACETONIDE
     Indication: SKIN IRRITATION
     Dosage: UNK
     Route: 061
     Dates: start: 20171006, end: 20200704
  2. LISINOPRIL. [Concomitant]
     Active Substance: LISINOPRIL
     Dosage: UNK
  3. MOMETASONE FUROATE. [Suspect]
     Active Substance: MOMETASONE FUROATE
     Indication: SKIN IRRITATION
     Dosage: UNK
     Route: 061
     Dates: start: 20171006, end: 20200704
  4. HYDROCORTISONE. [Suspect]
     Active Substance: HYDROCORTISONE
     Indication: SKIN IRRITATION
     Dosage: UNK
     Route: 061
     Dates: start: 19960101, end: 20200704
  5. BETNOVATE [Suspect]
     Active Substance: BETAMETHASONE
     Indication: SKIN IRRITATION
     Dosage: UNK
     Route: 061
     Dates: start: 20100101, end: 20200704

REACTIONS (10)
  - Skin disorder [Not Recovered/Not Resolved]
  - Burning sensation [Not Recovered/Not Resolved]
  - Steroid withdrawal syndrome [Not Recovered/Not Resolved]
  - Skin exfoliation [Not Recovered/Not Resolved]
  - Pruritus [Not Recovered/Not Resolved]
  - Insomnia [Not Recovered/Not Resolved]
  - Erythema [Not Recovered/Not Resolved]
  - Neurological symptom [Not Recovered/Not Resolved]
  - Swelling [Not Recovered/Not Resolved]
  - Pain [Not Recovered/Not Resolved]

NARRATIVE: CASE EVENT DATE: 20200704
